FAERS Safety Report 7606288-8 (Version None)
Quarter: 2011Q3

REPORT INFORMATION
  Report Type: 
  Country: None (occurrence: None)
  Receive Date: 20110705
  Receipt Date: 20110620
  Transmission Date: 20111222
  Serious: Yes (Other)
  Sender: FDA-Public Use
  Company Number: 2011MA007791

PATIENT
  Age: 44 Year
  Sex: Female

DRUGS (4)
  1. CLONAZEPAM [Suspect]
     Indication: OVERDOSE
  2. ETHANOL [Suspect]
     Indication: OVERDOSE
  3. OXYCODONE/ACETAMINOPHEN [Suspect]
     Indication: OVERDOSE
  4. VERAPAMIL HYDROCHLORIDE [Suspect]
     Indication: OVERDOSE

REACTIONS (12)
  - PUPILLARY REFLEX IMPAIRED [None]
  - SOMNOLENCE [None]
  - WHITE BLOOD CELL COUNT INCREASED [None]
  - HYPOTENSION [None]
  - HYPERGLYCAEMIA [None]
  - BODY TEMPERATURE DECREASED [None]
  - NODAL RHYTHM [None]
  - MYDRIASIS [None]
  - MULTIPLE DRUG OVERDOSE [None]
  - MENTAL STATUS CHANGES [None]
  - HAEMODYNAMIC INSTABILITY [None]
  - LIPASE INCREASED [None]
